FAERS Safety Report 12944203 (Version 1)
Quarter: 2016Q4

REPORT INFORMATION
  Report Type: Spontaneous
  Country: US (occurrence: US)
  Receive Date: 20161115
  Receipt Date: 20161115
  Transmission Date: 20170207
  Serious: No
  Sender: FDA-Public Use
  Company Number: US-PFIZER INC-2016524896

PATIENT
  Age: 53 Year
  Sex: Female

DRUGS (11)
  1. DARVOCET-N 100 [Suspect]
     Active Substance: ACETAMINOPHEN\PROPOXYPHENE NAPSYLATE
     Dosage: UNK
  2. CIMETIDINE [Suspect]
     Active Substance: CIMETIDINE
     Dosage: UNK
  3. VICODIN [Suspect]
     Active Substance: ACETAMINOPHEN\HYDROCODONE BITARTRATE
     Dosage: UNK
  4. CODEINE [Suspect]
     Active Substance: CODEINE
     Dosage: UNK
  5. TAGAMET [Suspect]
     Active Substance: CIMETIDINE
     Dosage: UNK
  6. PROCARDIA [Suspect]
     Active Substance: NIFEDIPINE
     Dosage: UNK
  7. PLENDIL [Suspect]
     Active Substance: FELODIPINE
     Dosage: UNK
  8. DILAUDID [Suspect]
     Active Substance: HYDROMORPHONE HYDROCHLORIDE
     Dosage: UNK
  9. NORVASC [Suspect]
     Active Substance: AMLODIPINE BESYLATE
     Dosage: UNK
  10. ASPIRIN. [Suspect]
     Active Substance: ASPIRIN
     Dosage: UNK
  11. CITALOPRAM [Suspect]
     Active Substance: CITALOPRAM HYDROBROMIDE
     Dosage: UNK

REACTIONS (1)
  - Drug hypersensitivity [Unknown]
